FAERS Safety Report 10015729 (Version 1)
Quarter: 2014Q1

REPORT INFORMATION
  Report Type: Spontaneous
  Country: US (occurrence: US)
  Receive Date: 20140317
  Receipt Date: 20140317
  Transmission Date: 20141002
  Serious: Yes (Other)
  Sender: FDA-Public Use
  Company Number: US-ABBVIE-14P-163-1210636-00

PATIENT
  Sex: Female
  Weight: 61.29 kg

DRUGS (2)
  1. SYNTHROID [Suspect]
     Indication: HYPOTHYROIDISM
     Dates: start: 1983
  2. METHADONE [Concomitant]
     Indication: NERVE COMPRESSION
     Dosage: PATCHES

REACTIONS (4)
  - Throat cancer [Unknown]
  - Dysphonia [Not Recovered/Not Resolved]
  - Pharyngeal lesion [Unknown]
  - Insomnia [Not Recovered/Not Resolved]
